FAERS Safety Report 18235202 (Version 2)
Quarter: 2020Q3

REPORT INFORMATION
  Report Type: Spontaneous
  Country: FR (occurrence: FR)
  Receive Date: 20200905
  Receipt Date: 20200908
  Transmission Date: 20201103
  Serious: Yes (Hospitalization)
  Sender: FDA-Public Use
  Company Number: FR-ABBVIE-20K-056-3554205-00

PATIENT
  Age: 44 Year
  Sex: Male
  Weight: 92 kg

DRUGS (5)
  1. ZARZIO [Concomitant]
     Active Substance: FILGRASTIM
     Indication: PRODUCT USED FOR UNKNOWN INDICATION
     Dosage: UNK
  2. WELLVONE [Concomitant]
     Active Substance: ATOVAQUONE
     Indication: PRODUCT USED FOR UNKNOWN INDICATION
     Dosage: UNK
  3. FLUCONAZOLE. [Interacting]
     Active Substance: FLUCONAZOLE
     Indication: PNEUMONIA CRYPTOCOCCAL
     Dosage: 800 MG, 1X/DAY
     Route: 048
     Dates: start: 20200723
  4. IMBRUVICA [Suspect]
     Active Substance: IBRUTINIB
     Indication: CHRONIC LYMPHOCYTIC LEUKAEMIA
     Dosage: 280 MG, 1X/DAY
     Route: 048
     Dates: start: 20200803, end: 20200808
  5. ZELITREX [Concomitant]
     Active Substance: VALACYCLOVIR HYDROCHLORIDE
     Indication: PRODUCT USED FOR UNKNOWN INDICATION
     Dosage: UNK

REACTIONS (9)
  - Face oedema [Recovering/Resolving]
  - Rash maculo-papular [Recovering/Resolving]
  - Pyrexia [Recovered/Resolved]
  - Off label use [Unknown]
  - Pruritus [Recovering/Resolving]
  - Drug interaction [Recovered/Resolved]
  - Hepatocellular injury [Recovered/Resolved]
  - Oral mucosal erythema [Recovering/Resolving]
  - Product use in unapproved indication [Unknown]

NARRATIVE: CASE EVENT DATE: 20200803
